FAERS Safety Report 7747068-2 (Version None)
Quarter: 2011Q3

REPORT INFORMATION
  Report Type: 
  Country: None (occurrence: None)
  Receive Date: 20110913
  Receipt Date: 20110907
  Transmission Date: 20111222
  Serious: Yes (Hospitalization)
  Sender: FDA-Public Use
  Company Number: PHEH2011US03698

PATIENT
  Sex: Female

DRUGS (1)
  1. GILENYA [Suspect]
     Indication: MULTIPLE SCLEROSIS
     Dosage: 0.5 MG/ DAILY
     Route: 048
     Dates: start: 20110617, end: 20110801

REACTIONS (3)
  - URINARY TRACT INFECTION [None]
  - NAUSEA [None]
  - VOMITING [None]
